FAERS Safety Report 11128255 (Version 1)
Quarter: 2015Q2

REPORT INFORMATION
  Report Type: Report from Study
  Country: CH (occurrence: CH)
  Receive Date: 20150521
  Receipt Date: 20150521
  Transmission Date: 20150821
  Serious: Yes (Other)
  Sender: FDA-Public Use
  Company Number: CH-BAXTER-2015BAX027561

PATIENT

DRUGS (4)
  1. NACL 0.9% VIAFLEX [Suspect]
     Active Substance: SODIUM CHLORIDE
     Indication: OFF LABEL USE
     Dosage: MEDIAL TO LATEROCRANIAL PUNCTURE
     Route: 042
  2. NACL 0.9% VIAFLEX [Suspect]
     Active Substance: SODIUM CHLORIDE
     Indication: INFILTRATION ANAESTHESIA
     Dosage: LATERAL TO LATEROCRANIAL PUNCTURE
     Route: 042
  3. NACL 0.9% VIAFLEX [Suspect]
     Active Substance: SODIUM CHLORIDE
     Dosage: MEDIAL TO MEDIOCAUDAL PUNCTURE
     Route: 042
  4. NACL 0.9% VIAFLEX [Suspect]
     Active Substance: SODIUM CHLORIDE
     Dosage: LATERAL TO MEDIOCAUDAL PUNCTURE
     Route: 042

REACTIONS (1)
  - Haematoma [Unknown]
